FAERS Safety Report 6895895-6 (Version None)
Quarter: 2010Q3

REPORT INFORMATION
  Report Type: 
  Country: None (occurrence: None)
  Receive Date: 20100802
  Receipt Date: 20100719
  Transmission Date: 20110219
  Serious: Yes (Hospitalization, Disabling)
  Sender: FDA-Public Use
  Company Number: US-BAYER-201017770NA

PATIENT
  Age: 27 Year
  Sex: Female
  Weight: 54 kg

DRUGS (13)
  1. YASMIN [Suspect]
     Indication: ORAL CONTRACEPTION
     Route: 048
     Dates: start: 20061201, end: 20080610
  2. MACROBID [Concomitant]
  3. VENTOLIN DS [Concomitant]
  4. MOTRIN [Concomitant]
  5. ADVIL LIQUI-GELS [Concomitant]
  6. HYDROCORTISONE [Concomitant]
  7. TRIAMCINOLONE [Concomitant]
  8. SINGULAIR [Concomitant]
  9. ALLERGY SHOTS [Concomitant]
  10. EYE DROPS [Concomitant]
  11. BENADRYL [Concomitant]
  12. PREDNISONE [Concomitant]
  13. ZYRTEC [Concomitant]

REACTIONS (5)
  - CHEST PAIN [None]
  - DEEP VEIN THROMBOSIS [None]
  - MUSCULOSKELETAL PAIN [None]
  - PAIN IN EXTREMITY [None]
  - PULMONARY EMBOLISM [None]
